FAERS Safety Report 8529718-6 (Version None)
Quarter: 2012Q3

REPORT INFORMATION
  Report Type: 
  Country: None (occurrence: None)
  Receive Date: 20120710
  Receipt Date: 20120629
  Transmission Date: 20120928
  Serious: Yes (Hospitalization, Congenital Anomaly)
  Sender: FDA-Public Use
  Company Number: DSA_58219_2012

PATIENT
  Sex: Male
  Weight: 1.8 kg

DRUGS (1)
  1. DICLOFENAC SODIUM [Suspect]
     Indication: BACK PAIN
     Dosage: (50 MG ON A NUMBER OF OCCASIONS THROUGHOUT SECOND AND THIRD TRIMESTER TRANSPLACENTAL)
     Route: 064

REACTIONS (7)
  - TWIN PREGNANCY [None]
  - HYPERKALAEMIA [None]
  - OLIGOHYDRAMNIOS [None]
  - NEONATAL RESPIRATORY DISTRESS SYNDROME [None]
  - METABOLIC ACIDOSIS [None]
  - MATERNAL DRUGS AFFECTING FOETUS [None]
  - RENAL IMPAIRMENT [None]
